FAERS Safety Report 16094013 (Version 3)
Quarter: 2019Q2

REPORT INFORMATION
  Report Type: Report from Study
  Country: ES (occurrence: ES)
  Receive Date: 20190320
  Receipt Date: 20190628
  Transmission Date: 20190711
  Serious: Yes (Hospitalization, Other)
  Sender: FDA-Public Use
  Company Number: ES-ROCHE-2268453

PATIENT
  Age: 66 Year
  Sex: Female
  Weight: 64 kg

DRUGS (12)
  1. DAFLON [DIOSMIN;HESPERIDIN] [Concomitant]
     Route: 065
  2. ATORVASTATIN [Concomitant]
     Active Substance: ATORVASTATIN
     Route: 065
  3. HIBOR [Concomitant]
     Route: 058
     Dates: start: 20190223, end: 20190224
  4. FLUOXETINE [Concomitant]
     Active Substance: FLUOXETINE HYDROCHLORIDE
     Route: 065
  5. OMEPRAZOLE. [Concomitant]
     Active Substance: OMEPRAZOLE
     Route: 065
  6. ATEZOLIZUMAB. [Suspect]
     Active Substance: ATEZOLIZUMAB
     Indication: OVARIAN CANCER
     Route: 042
     Dates: start: 20160509, end: 20190123
  7. LOSARTAN/HCTZ [Concomitant]
     Active Substance: HYDROCHLOROTHIAZIDE\LOSARTAN
  8. PREDNISONE. [Concomitant]
     Active Substance: PREDNISONE
  9. SINTROM [Concomitant]
     Active Substance: ACENOCOUMAROL
  10. NOCTAMID [Concomitant]
     Active Substance: LORMETAZEPAM
  11. BISOPROLOL [Concomitant]
     Active Substance: BISOPROLOL
  12. BEVACIZUMAB. [Suspect]
     Active Substance: BEVACIZUMAB
     Indication: OVARIAN CANCER
     Route: 065
     Dates: start: 20180312, end: 20190123

REACTIONS (4)
  - Ischaemic cerebral infarction [Recovered/Resolved]
  - Vasculitis [Recovered/Resolved]
  - Hypermetabolism [Unknown]
  - Cerebrovascular accident [Recovered/Resolved]

NARRATIVE: CASE EVENT DATE: 20190207
